FAERS Safety Report 18242397 (Version 1)
Quarter: 2020Q3

REPORT INFORMATION
  Report Type: Spontaneous
  Country: JP (occurrence: JP)
  Receive Date: 20200908
  Receipt Date: 20200908
  Transmission Date: 20201103
  Serious: Yes (Hospitalization)
  Sender: FDA-Public Use
  Company Number: JP-MYLANLABS-2020M1076182

PATIENT
  Age: 8 Day
  Sex: Male

DRUGS (4)
  1. INDOMETHACIN                       /00003801/ [Suspect]
     Active Substance: INDOMETHACIN
     Indication: PATENT DUCTUS ARTERIOSUS
     Route: 065
  2. DOPAMINE [Suspect]
     Active Substance: DOPAMINE HYDROCHLORIDE
     Indication: SUPPORTIVE CARE
     Route: 065
  3. GANCICLOVIR. [Suspect]
     Active Substance: GANCICLOVIR
     Indication: CONGENITAL CYTOMEGALOVIRUS INFECTION
     Dosage: 12 MILLIGRAM/KILOGRAM, QD
     Route: 042
  4. DOBUTAMINE [Suspect]
     Active Substance: DOBUTAMINE HYDROCHLORIDE
     Indication: SUPPORTIVE CARE
     Route: 065

REACTIONS (6)
  - Enterocolitis [Unknown]
  - Neutropenia neonatal [Recovered/Resolved]
  - Pneumoperitoneum [Recovering/Resolving]
  - Neonatal intestinal perforation [Recovered/Resolved]
  - Transaminases increased [Unknown]
  - Off label use [Unknown]
